FAERS Safety Report 23720054 (Version 4)
Quarter: 2024Q3

REPORT INFORMATION
  Report Type: Report from Study
  Country: US (occurrence: US)
  Receive Date: 20240408
  Receipt Date: 20240708
  Transmission Date: 20241017
  Serious: Yes (Hospitalization, Other)
  Sender: TAKEDA
  Company Number: US-TAKEDA-2024TUS019692

PATIENT
  Age: 66 Year
  Sex: Female
  Weight: 82.086 kg

DRUGS (3)
  1. FRUQUINTINIB [Suspect]
     Active Substance: FRUQUINTINIB
     Indication: Colon cancer
     Dosage: 5 MILLIGRAM
     Route: 048
     Dates: start: 20240214
  2. FRUQUINTINIB [Suspect]
     Active Substance: FRUQUINTINIB
     Dosage: 5 MILLIGRAM
     Route: 048
  3. FRUQUINTINIB [Suspect]
     Active Substance: FRUQUINTINIB
     Dosage: 5 MILLIGRAM, QD
     Route: 048

REACTIONS (11)
  - Dry mouth [Unknown]
  - COVID-19 [Unknown]
  - Influenza [Unknown]
  - Pain [Unknown]
  - Pneumonia [Unknown]
  - Alopecia [Unknown]
  - Stomatitis [Unknown]
  - Dysphemia [Unknown]
  - Somnolence [Unknown]
  - Skin disorder [Unknown]
  - Hypertension [Unknown]

NARRATIVE: CASE EVENT DATE: 20240201
